FAERS Safety Report 6175615-3 (Version None)
Quarter: 2009Q2

REPORT INFORMATION
  Report Type: 
  Country: None (occurrence: None)
  Receive Date: 20090429
  Receipt Date: 20090224
  Transmission Date: 20091009
  Serious: Yes (Other)
  Sender: FDA-Public Use
  Company Number: 2009JP000888

PATIENT
  Age: 60 Year
  Sex: Male

DRUGS (9)
  1. PROGRAF [Suspect]
     Indication: STILL'S DISEASE ADULT ONSET
  2. PREDNISOLONE [Concomitant]
  3. CYCLOPHOSPHAMIDE [Concomitant]
  4. METHOTREXATE [Concomitant]
  5. AZATHIOPRINE [Concomitant]
  6. CYCLOSPORINE [Concomitant]
  7. ANTI-TNF-ALPHA (ANTI-TUMOUR NECROSIS FACTOR ALPHA) [Concomitant]
  8. ANTI IL-6R (INTERLEUKIN-6 RECEPTOR) ANTIBODY [Concomitant]
  9. RITUXIMAB (RITUXIMAB) [Concomitant]

REACTIONS (2)
  - MENINGITIS ASEPTIC [None]
  - NO THERAPEUTIC RESPONSE [None]
